FAERS Safety Report 20890718 (Version 2)
Quarter: 2022Q3

REPORT INFORMATION
  Report Type: Spontaneous
  Country: US (occurrence: US)
  Receive Date: 20220530
  Receipt Date: 20220825
  Transmission Date: 20221027
  Serious: No
  Sender: FDA-Public Use
  Company Number: US-BRISTOL-MYERS SQUIBB COMPANY-2022-044278

PATIENT
  Age: 63 Year
  Sex: Female

DRUGS (2)
  1. ORENCIA [Suspect]
     Active Substance: ABATACEPT
     Indication: Rheumatoid arthritis
     Route: 058
     Dates: start: 20220302
  2. ORENCIA [Suspect]
     Active Substance: ABATACEPT
     Dosage: START DATE: 27-JAN-2022.
     Route: 058
     Dates: start: 20211223

REACTIONS (3)
  - Cough [Unknown]
  - Upper respiratory tract infection [Unknown]
  - Headache [Unknown]
